FAERS Safety Report 8494533-9 (Version None)
Quarter: 2012Q3

REPORT INFORMATION
  Report Type: 
  Country: None (occurrence: None)
  Receive Date: 20120709
  Receipt Date: 20120627
  Transmission Date: 20120928
  Serious: Yes (Hospitalization, Other)
  Sender: FDA-Public Use
  Company Number: CA-JNJFOC-20120614450

PATIENT
  Sex: Female
  Weight: 72.2 kg

DRUGS (7)
  1. REMICADE [Suspect]
     Route: 042
     Dates: start: 20120504
  2. ATIVAN [Concomitant]
     Route: 065
  3. IMITREX [Concomitant]
     Route: 065
  4. REMICADE [Suspect]
     Indication: CROHN'S DISEASE
     Route: 042
  5. PANTOPRAZOLE SODIUM [Concomitant]
     Route: 065
  6. IMURAN [Concomitant]
     Route: 065
  7. FERROUS SULFATE TAB [Concomitant]
     Route: 065

REACTIONS (1)
  - ENDOMETRIAL CANCER [None]
